APPROVED DRUG PRODUCT: AMINOSYN II 4.25% IN DEXTROSE 25% IN PLASTIC CONTAINER
Active Ingredient: AMINO ACIDS; DEXTROSE
Strength: 4.25%;25GM/100ML
Dosage Form/Route: INJECTABLE;INJECTION
Application: N019713 | Product #005
Applicant: ABBOTT LABORATORIES HOSP PRODUCTS DIV
Approved: Sep 9, 1988 | RLD: No | RS: No | Type: DISCN